FAERS Safety Report 25659151 (Version 1)
Quarter: 2025Q3

REPORT INFORMATION
  Report Type: Spontaneous
  Country: CN (occurrence: CN)
  Receive Date: 20250808
  Receipt Date: 20250808
  Transmission Date: 20251020
  Serious: Yes (Other)
  Sender: ACCORD
  Company Number: None

PATIENT
  Age: 51 Year
  Sex: Female

DRUGS (3)
  1. TRASTUZUMAB [Suspect]
     Active Substance: TRASTUZUMAB
     Indication: Breast cancer
     Dosage: 576 MILLIGRAM, QD, STRENGTH: 150 MG, IV DRIP
     Route: 042
     Dates: start: 20250716, end: 20250716
  2. PERTUZUMAB [Suspect]
     Active Substance: PERTUZUMAB
     Indication: Breast cancer
     Dosage: 840 MILLIGRAM, QD, IV DRIP
     Route: 042
     Dates: start: 20250716, end: 20250716
  3. DOCETAXEL [Suspect]
     Active Substance: DOCETAXEL
     Indication: Breast cancer
     Dosage: 160 MILLIGRAM, QD, IV DRIP
     Route: 042
     Dates: start: 20250717, end: 20250717

REACTIONS (5)
  - Myelosuppression [Recovering/Resolving]
  - Rash [Unknown]
  - Pruritus [Unknown]
  - Peripheral swelling [Unknown]
  - Diarrhoea [Unknown]

NARRATIVE: CASE EVENT DATE: 20250701
